FAERS Safety Report 8159244-8 (Version None)
Quarter: 2012Q1

REPORT INFORMATION
  Report Type: 
  Country: None (occurrence: None)
  Receive Date: 20120103
  Receipt Date: 20111031
  Transmission Date: 20120608
  Serious: No
  Sender: FDA-Public Use
  Company Number: AE-2011-002333

PATIENT
  Age: 55 Year
  Sex: Male
  Weight: 86.1834 kg

DRUGS (8)
  1. PLAVIX [Concomitant]
  2. ASPIRIN [Concomitant]
  3. PEGASYS [Concomitant]
  4. MAXZIDE [Concomitant]
  5. INCIVEK [Suspect]
     Dosage: 6 DOSAGE FORMS (2 DOSAGE FORMS, 1 IN 8 HR)
  6. CRESTOR [Concomitant]
  7. RIBAVIRIN [Concomitant]
  8. BENICAR [Concomitant]

REACTIONS (1)
  - PHARYNGITIS [None]
